FAERS Safety Report 21826396 (Version 1)
Quarter: 2023Q1

REPORT INFORMATION
  Report Type: Spontaneous
  Country: US (occurrence: US)
  Receive Date: 20230106
  Receipt Date: 20230106
  Transmission Date: 20230418
  Serious: Yes (Other)
  Sender: FDA-Public Use
  Company Number: US-MACLEODS PHARMACEUTICALS US LTD-MAC2022039085

PATIENT

DRUGS (6)
  1. SILDENAFIL [Suspect]
     Active Substance: SILDENAFIL
     Indication: Pulmonary arterial hypertension
     Dosage: UNK
     Route: 042
  2. EPOPROSTENOL [Concomitant]
     Active Substance: EPOPROSTENOL
     Indication: Pulmonary arterial hypertension
     Dosage: UNK
     Route: 042
  3. MILRINONE [Concomitant]
     Active Substance: MILRINONE
     Indication: Pulmonary arterial hypertension
     Dosage: UNK
     Route: 065
  4. Inhaled nitric oxide [Concomitant]
     Indication: Pulmonary arterial hypertension
     Dosage: UNK INCREASED TO 60 PPM
  5. BOSENTAN [Concomitant]
     Active Substance: BOSENTAN
     Indication: Pulmonary arterial hypertension
     Dosage: UNK
     Route: 065
  6. TREPROSTINIL [Concomitant]
     Active Substance: TREPROSTINIL
     Indication: Pulmonary arterial hypertension
     Dosage: UNK 50 NG/KG/MIN
     Route: 042

REACTIONS (1)
  - Drug ineffective [Unknown]
